FAERS Safety Report 8190974-8 (Version None)
Quarter: 2012Q1

REPORT INFORMATION
  Report Type: 
  Country: None (occurrence: None)
  Receive Date: 20120307
  Receipt Date: 20120305
  Transmission Date: 20120608
  Serious: Yes (Other)
  Sender: FDA-Public Use
  Company Number: US-ROCHE-768022

PATIENT

DRUGS (4)
  1. CYCLOPHOSPHAMIDE [Suspect]
     Indication: NON-HODGKIN'S LYMPHOMA
     Dosage: ON DAYS 1 THROUGH 4 EVERY 35 DAYS
     Route: 048
  2. MABTHERA [Suspect]
     Indication: NON-HODGKIN'S LYMPHOMA
     Dosage: ON DAYS 1, 8, 15 AND 22 OF 35 DAYS OF FIRST CYCLE AND ONLY ON DAY 1 OF SUBSEQUENT CYCLES.
  3. DEXAMETHASONE [Suspect]
     Indication: NON-HODGKIN'S LYMPHOMA
     Dosage: ON DAYS 1, 2, 8, 9, 15, 16, 22 AND 23
     Route: 048
  4. BORTEZOMIB [Suspect]
     Indication: NON-HODGKIN'S LYMPHOMA
     Dosage: ON DAYS 1, 8, 15, 22 EVERY 35 DAY CYCLES

REACTIONS (7)
  - MYELITIS TRANSVERSE [None]
  - THROMBOCYTOPENIA [None]
  - VASCULITIS CEREBRAL [None]
  - LEUKOPENIA [None]
  - MUCOSAL INFLAMMATION [None]
  - INTERSTITIAL LUNG DISEASE [None]
  - CHEST PAIN [None]
